FAERS Safety Report 9735313 (Version 2)
Quarter: 2014Q1

REPORT INFORMATION
  Report Type: Spontaneous
  Country: AR (occurrence: AR)
  Receive Date: 20131206
  Receipt Date: 20140228
  Transmission Date: 20141002
  Serious: Yes (Hospitalization, Other)
  Sender: FDA-Public Use
  Company Number: AR-PFIZER INC-2013346148

PATIENT
  Age: 51 Year
  Sex: Female

DRUGS (7)
  1. SUTENT [Suspect]
     Indication: NEOPLASM MALIGNANT
     Dosage: 50 MG, SCHEME 4/2
     Dates: start: 20121201
  2. SUTENT [Suspect]
     Dosage: 50 MG, SCHEME 4/2
     Dates: start: 201311, end: 201312
  3. MORPHINE [Concomitant]
     Indication: PAIN
     Dosage: 4 ML, EVERY 4 HRS
     Dates: start: 201312
  4. TRIMEBUTINE [Concomitant]
     Dosage: 1 DF, 3X/DAY
  5. METHYLPREDNISOLONE [Concomitant]
     Dosage: 0.5 DF, 1X/DAY
  6. CLONAZEPAM [Concomitant]
     Dosage: 2 MG, 1X/DAY
  7. OMEPRAZOL [Concomitant]

REACTIONS (10)
  - Cystitis noninfective [Not Recovered/Not Resolved]
  - Vertigo [Not Recovered/Not Resolved]
  - Wound haemorrhage [Recovered/Resolved]
  - Infection [Recovered/Resolved]
  - Panic attack [Not Recovered/Not Resolved]
  - Feeling hot [Not Recovered/Not Resolved]
  - Pain in extremity [Not Recovered/Not Resolved]
  - Fall [Recovered/Resolved]
  - Disease progression [Unknown]
  - Neoplasm malignant [Unknown]
